FAERS Safety Report 10017452 (Version 1)
Quarter: 2014Q1

REPORT INFORMATION
  Report Type: Spontaneous
  Country: US (occurrence: None)
  Receive Date: 20140313
  Receipt Date: 20140313
  Transmission Date: 20141002
  Serious: Yes (Disabling)
  Sender: FDA-Public Use
  Company Number: None

PATIENT
  Age: 89 Year
  Sex: Female
  Weight: 62.6 kg

DRUGS (21)
  1. LEVOFLOXACIN [Suspect]
     Indication: SINUSITIS
     Dosage: 1 TABLET
     Route: 048
     Dates: start: 20140228, end: 20140303
  2. TEVETEN [Concomitant]
  3. AMLODOPENE [Concomitant]
  4. SPIRAONOLACTONE [Concomitant]
  5. THEOPHYLLINE [Concomitant]
  6. ISOTOL [Concomitant]
  7. LUMIGAN [Concomitant]
  8. AZOPT [Concomitant]
  9. PRAMIPEXOLE [Concomitant]
  10. DESONIDE OINTMENT [Concomitant]
  11. LOW DOSE ASPIRIN [Concomitant]
  12. PANTOTHENIC ACID [Concomitant]
  13. STOOL SOFTENER [Concomitant]
  14. VIT. B-12 [Concomitant]
  15. VIT C [Concomitant]
  16. VIT. D [Concomitant]
  17. VIT E [Concomitant]
  18. MAGNESIUM [Concomitant]
  19. METRONIDAZOLE CREAM [Concomitant]
  20. CLOBETASOL PROPRONATE OINTMENT [Concomitant]
  21. PREMARIN VAGINAL CREAM [Concomitant]

REACTIONS (5)
  - Tendon rupture [None]
  - Hypoaesthesia [None]
  - Neuropathy peripheral [None]
  - Pain [None]
  - Gait disturbance [None]
